FAERS Safety Report 7764420-X (Version None)
Quarter: 2011Q3

REPORT INFORMATION
  Report Type: 
  Country: None (occurrence: None)
  Receive Date: 20110919
  Receipt Date: 20110908
  Transmission Date: 20111222
  Serious: Yes (Hospitalization)
  Sender: FDA-Public Use
  Company Number: KAD201108-000004

PATIENT
  Age: 30 Year
  Sex: Male

DRUGS (2)
  1. RIBAVIRIN [Suspect]
     Indication: HEPATITIS C
     Dosage: 1200 MILLIGRAMS/DAY
     Dates: start: 20090101
  2. PEGYLATED IFN-ALFA-2A [Suspect]
     Indication: HEPATITIS C
     Dosage: 135 MICROGRAMS/WEEK
     Dates: start: 20090101

REACTIONS (12)
  - FIBRIN D DIMER INCREASED [None]
  - CARDIAC VALVE VEGETATION [None]
  - ENDOCARDITIS NONINFECTIVE [None]
  - BLOOD FIBRINOGEN INCREASED [None]
  - COAGULATION FACTOR VIII LEVEL INCREASED [None]
  - ACTIVATED PROTEIN C RESISTANCE [None]
  - BLOOD CHOLESTEROL INCREASED [None]
  - PULMONARY INFARCTION [None]
  - PULMONARY EMBOLISM [None]
  - HYPERHOMOCYSTEINAEMIA [None]
  - LOW DENSITY LIPOPROTEIN INCREASED [None]
  - BLOOD TRIGLYCERIDES INCREASED [None]
